FAERS Safety Report 8315038-1 (Version None)
Quarter: 2012Q2

REPORT INFORMATION
  Report Type: 
  Country: None (occurrence: None)
  Receive Date: 20120426
  Receipt Date: 20120417
  Transmission Date: 20120825
  Serious: Yes (Hospitalization)
  Sender: FDA-Public Use
  Company Number: FR-ASTRAZENECA-2012SE25505

PATIENT
  Age: 32764 Day
  Sex: Male

DRUGS (5)
  1. FELODIPINE [Suspect]
     Route: 048
  2. METOPROLOL TARTRATE [Suspect]
     Indication: HYPERTENSION
     Dosage: 12 TABLETS
     Route: 048
     Dates: start: 20120120, end: 20120120
  3. METOPROLOL TARTRATE [Suspect]
     Route: 048
  4. FENOFIBRATE [Concomitant]
  5. FELODIPINE [Suspect]
     Indication: HYPERTENSION
     Dosage: 6 TABLETS
     Route: 048
     Dates: start: 20120120, end: 20120120

REACTIONS (4)
  - INCORRECT DOSE ADMINISTERED [None]
  - DRUG ADMINISTRATION ERROR [None]
  - HYPOTENSION [None]
  - BRADYCARDIA [None]
